FAERS Safety Report 7105289-6 (Version None)
Quarter: 2010Q4

REPORT INFORMATION
  Report Type: 
  Country: None (occurrence: None)
  Receive Date: 20101116
  Receipt Date: 20100913
  Transmission Date: 20110411
  Serious: Yes (Other)
  Sender: FDA-Public Use
  Company Number: US-BAYER-200923321NA

PATIENT
  Age: 43 Year
  Sex: Female
  Weight: 85 kg

DRUGS (13)
  1. YASMIN [Suspect]
     Indication: CONTRACEPTION
     Route: 048
     Dates: start: 20030101, end: 20100203
  2. OCELLA [Suspect]
     Indication: CONTRACEPTION
     Route: 048
  3. ASPIRIN [Concomitant]
     Route: 048
  4. LEXAPRO [Concomitant]
     Route: 048
  5. SINGULAIR [Concomitant]
     Route: 048
  6. METOPROLOL [Concomitant]
     Dosage: UNIT DOSE: 25 MG
     Route: 048
  7. VERAPAMIL [Concomitant]
     Route: 048
  8. TWISTHALER BREATH ACTIVATED [Concomitant]
     Dosage: ONE PUFF
  9. LOVAZA [Concomitant]
     Route: 048
  10. NITROGLYCERIN [Concomitant]
     Route: 060
  11. NAPROXEN [Concomitant]
  12. POTASSIUM CHLORIDE [Concomitant]
  13. PRAVACHOL [Concomitant]

REACTIONS (21)
  - ANXIETY [None]
  - ARRHYTHMIA [None]
  - BLOOD PRESSURE DECREASED [None]
  - CARDIAC FLUTTER [None]
  - CHEST DISCOMFORT [None]
  - CHEST PAIN [None]
  - CORONARY ARTERY DISEASE [None]
  - DIZZINESS [None]
  - DYSPHAGIA [None]
  - DYSPNOEA [None]
  - FATIGUE [None]
  - HAEMATURIA [None]
  - HEADACHE [None]
  - HEART RATE IRREGULAR [None]
  - HYPOAESTHESIA [None]
  - INJURY [None]
  - NON-CARDIAC CHEST PAIN [None]
  - PALPITATIONS [None]
  - SINUS BRADYCARDIA [None]
  - VENTRICULAR EXTRASYSTOLES [None]
  - VULVAR DYSPLASIA [None]
